FAERS Safety Report 18794217 (Version 1)
Quarter: 2021Q1

REPORT INFORMATION
  Report Type: Spontaneous
  Country: US (occurrence: US)
  Receive Date: 20210127
  Receipt Date: 20210127
  Transmission Date: 20210419
  Serious: Yes (Hospitalization)
  Sender: FDA-Public Use
  Company Number: None

PATIENT
  Age: 63 Year
  Sex: Male

DRUGS (9)
  1. MG?PLUS [Concomitant]
  2. METOLAZONE. [Concomitant]
     Active Substance: METOLAZONE
  3. METOPROL SUC [Concomitant]
  4. SILDENAFIL. [Suspect]
     Active Substance: SILDENAFIL
     Indication: PULMONARY HYPERTENSION
     Route: 048
     Dates: start: 20200615
  5. AMIODARONE [Concomitant]
     Active Substance: AMIODARONE
  6. POT CL MICRO [Concomitant]
  7. LEVETIRACETA [Concomitant]
     Active Substance: LEVETIRACETAM
  8. TAMSULOSIN [Concomitant]
     Active Substance: TAMSULOSIN
  9. HYDRALAZINE [Concomitant]
     Active Substance: HYDRALAZINE HYDROCHLORIDE

REACTIONS (1)
  - Pneumonia [None]

NARRATIVE: CASE EVENT DATE: 20201202
